FAERS Safety Report 6148532-2 (Version None)
Quarter: 2009Q2

REPORT INFORMATION
  Report Type: 
  Country: None (occurrence: None)
  Receive Date: 20090406
  Receipt Date: 20090406
  Transmission Date: 20091009
  Serious: No
  Sender: FDA-Public Use
  Company Number: None

PATIENT
  Sex: Female
  Weight: 53.0709 kg

DRUGS (1)
  1. AZITHROMYCIN [Suspect]
     Indication: BRONCHITIS
     Dosage: 250MGX6TABLETS 1 PER DAY PO
     Route: 048
     Dates: start: 20090401, end: 20090403

REACTIONS (5)
  - ASTHENIA [None]
  - DIZZINESS [None]
  - HEADACHE [None]
  - OROPHARYNGEAL PAIN [None]
  - PAIN [None]
